FAERS Safety Report 6475930-X (Version None)
Quarter: 2009Q4

REPORT INFORMATION
  Report Type: 
  Country: None (occurrence: None)
  Receive Date: 20091119
  Receipt Date: 20090916
  Transmission Date: 20100525
  Serious: Yes (Other)
  Sender: FDA-Public Use
  Company Number: 2009SP027573

PATIENT
  Age: 28 Year
  Sex: Female
  Weight: 95 kg

DRUGS (1)
  1. IMPLANON [Suspect]
     Indication: CONTRACEPTION
     Dosage: 1 DF;SC
     Route: 058
     Dates: start: 20030101

REACTIONS (4)
  - COMPLICATION OF DEVICE REMOVAL [None]
  - MOTOR DYSFUNCTION [None]
  - PARAESTHESIA [None]
  - SENSORY DISTURBANCE [None]
